FAERS Safety Report 5300184-7 (Version None)
Quarter: 2007Q2

REPORT INFORMATION
  Report Type: 
  Country: None (occurrence: None)
  Receive Date: 20070418
  Receipt Date: 20070406
  Transmission Date: 20071010
  Serious: Yes (Hospitalization, Disabling)
  Sender: FDA-Public Use
  Company Number: HQWYE896206APR07

PATIENT
  Age: 67 Year
  Sex: Female

DRUGS (10)
  1. CORDARONE [Suspect]
     Indication: ATRIAL FIBRILLATION
     Dosage: REPORTED AS 200 MG TWICE DAILY AND 200 MG DAILY
     Route: 048
     Dates: start: 20061215, end: 20070101
  2. CORDARONE [Interacting]
     Indication: ATRIAL FLUTTER
     Dosage: 200 MG TABLET, DOSE AND FREQUENCY UNSPECIFIED
     Route: 048
     Dates: start: 20070101
  3. SPECIAFOLDINE [Interacting]
     Indication: DEFICIENCY ANAEMIA
     Route: 048
     Dates: end: 20070101
  4. RIVOTRIL [Concomitant]
     Dosage: UNSPECIFIED
  5. LEVOTHYROXINE SODIUM [Interacting]
     Indication: HYPOTHYROIDISM
     Route: 048
     Dates: end: 20070101
  6. LEVOTHYROXINE SODIUM [Interacting]
     Dosage: 75 MCG, DOSE AND FREQUENCY UNSPECIFIED
     Route: 048
     Dates: start: 20070101
  7. TARDYFERON [Interacting]
     Indication: DEFICIENCY ANAEMIA
     Route: 048
     Dates: end: 20070101
  8. SINTROM [Interacting]
     Indication: ATRIAL FIBRILLATION
     Route: 048
     Dates: start: 20061215, end: 20070101
  9. SINTROM [Interacting]
     Indication: ATRIAL FLUTTER
  10. LASIX [Interacting]
     Indication: ESSENTIAL HYPERTENSION
     Route: 048
     Dates: end: 20070101

REACTIONS (4)
  - DRUG INTERACTION [None]
  - INTERNATIONAL NORMALISED RATIO INCREASED [None]
  - MENINGORRHAGIA [None]
  - SUBDURAL HAEMATOMA [None]
